FAERS Safety Report 5909987-9 (Version None)
Quarter: 2008Q4

REPORT INFORMATION
  Report Type: 
  Country: None (occurrence: None)
  Receive Date: 20081007
  Receipt Date: 20080910
  Transmission Date: 20090506
  Serious: Yes (Other)
  Sender: FDA-Public Use
  Company Number: JP-AVENTIS-200812260JP

PATIENT
  Age: 61 Year
  Sex: Male
  Weight: 64 kg

DRUGS (4)
  1. CLEXANE [Suspect]
     Indication: THROMBOSIS PROPHYLAXIS
     Route: 058
     Dates: start: 20080718, end: 20080718
  2. CLEXANE [Suspect]
     Route: 058
     Dates: start: 20080719, end: 20080722
  3. FOSMICIN [Suspect]
     Route: 042
     Dates: start: 20080717, end: 20080717
  4. FOSMICIN [Suspect]
     Route: 042
     Dates: start: 20080719, end: 20080720

REACTIONS (4)
  - ALANINE AMINOTRANSFERASE INCREASED [None]
  - ASPARTATE AMINOTRANSFERASE INCREASED [None]
  - GAMMA-GLUTAMYLTRANSFERASE INCREASED [None]
  - LIVER INJURY [None]
